FAERS Safety Report 23811188 (Version 2)
Quarter: 2025Q2

REPORT INFORMATION
  Report Type: Report from Study
  Country: CO (occurrence: CO)
  Receive Date: 20240502
  Receipt Date: 20250410
  Transmission Date: 20250716
  Serious: Yes (Hospitalization, Other)
  Sender: JOHNSON AND JOHNSON
  Company Number: CO-JNJFOC-20230859224

PATIENT
  Age: 26 Year
  Sex: Male
  Weight: 55 kg

DRUGS (5)
  1. INVEGA TRINZA [Suspect]
     Active Substance: PALIPERIDONE PALMITATE
     Indication: Schizophrenia
     Dosage: LAST DATE OF ADMINISTRATION: 13-JAN-2025
     Route: 030
     Dates: start: 20200118
  2. INVEGA TRINZA [Suspect]
     Active Substance: PALIPERIDONE PALMITATE
  3. INVEGA TRINZA [Suspect]
     Active Substance: PALIPERIDONE PALMITATE
  4. SERTRALINE [Concomitant]
     Active Substance: SERTRALINE HYDROCHLORIDE
  5. CLOZAPINE [Concomitant]
     Active Substance: CLOZAPINE
     Indication: Sleep disorder therapy

REACTIONS (7)
  - Schizophrenia [Not Recovered/Not Resolved]
  - Overdose [Not Recovered/Not Resolved]
  - Blood cholesterol abnormal [Not Recovered/Not Resolved]
  - Blood triglycerides increased [Recovering/Resolving]
  - Tobacco user [Not Recovered/Not Resolved]
  - Hepatitis [Recovering/Resolving]
  - Substance abuse [Unknown]

NARRATIVE: CASE EVENT DATE: 20230807
